FAERS Safety Report 4805136-9 (Version None)
Quarter: 2005Q4

REPORT INFORMATION
  Report Type: 
  Country: None (occurrence: None)
  Receive Date: 20051017
  Receipt Date: 20050921
  Transmission Date: 20060501
  Serious: Yes (Death)
  Sender: FDA-Public Use
  Company Number: APP200500452

PATIENT
  Age: 36 Year
  Sex: Female

DRUGS (25)
  1. METHOTREXATE [Suspect]
     Indication: BONE SARCOMA
     Dosage: 24GM, ONCE, INTRAVENOUS; (12 GM, APPROX. 2 WEEKS AFTER THE FIRST DOSE)
     Route: 042
  2. LEUCOVORIN CALCIUM FOR INJECTION (CALCIUM FOLINATE) [Concomitant]
  3. DOXORUBICIN HYDROCHLORIDE INJECTION, USP (DOXORUBICIN HYDROCHLORIDE) [Concomitant]
  4. CISPLATIN [Concomitant]
  5. ONDANSETRON [Concomitant]
  6. DEXAMETHASONE [Concomitant]
  7. ENOXAPARIN (ENOXAPARIN) [Concomitant]
  8. PANTOPRAZOLE SODIUM [Concomitant]
  9. ZOLPIDEM TARTRATE [Concomitant]
  10. LORAZEPAM [Concomitant]
  11. ALPRAZOLAM [Concomitant]
  12. SERTRALINE HCL [Concomitant]
  13. LORATADINE (LORATADINE W/PSEUDOEPHEDRINE) [Concomitant]
  14. ACYCLOVIR [Concomitant]
  15. LEVOFLOXACIN [Concomitant]
  16. VANCOMYCIN [Concomitant]
  17. MULTIVITAMIN (MULTIVITAMIN) [Concomitant]
  18. SCOPOLAMINE (HYOSCINE) [Concomitant]
  19. PEGFILGRASTIM (PEGFILGRASTIM) [Concomitant]
  20. ETHINYL ESTRADIOL (ETHINYL ESTRADIOL W/NORGESTREL) [Concomitant]
  21. FOLATE (FOLATE SODIUM) [Concomitant]
  22. MAGNESIUM OXIDE (MAGNESIUM OXIDE) [Concomitant]
  23. POTASSIUM CHLORIDE [Concomitant]
  24. MAGNESIUM SULFATE [Concomitant]
  25. MANNITOL [Concomitant]

REACTIONS (5)
  - CARDIOTOXICITY [None]
  - CHEST PAIN [None]
  - LIVER FUNCTION TEST ABNORMAL [None]
  - SINUS BRADYCARDIA [None]
  - VENTRICULAR TACHYCARDIA [None]
